FAERS Safety Report 9900225 (Version 2)
Quarter: 2014Q1

REPORT INFORMATION
  Report Type: Spontaneous
  Country: MA (occurrence: MA)
  Receive Date: 20140215
  Receipt Date: 20140218
  Transmission Date: 20141002
  Serious: No
  Sender: FDA-Public Use
  Company Number: MA-ROCHE-1350356

PATIENT
  Sex: Female

DRUGS (4)
  1. PEGASYS [Suspect]
     Indication: HEPATITIS C
     Route: 058
     Dates: start: 201401
  2. PEGASYS [Suspect]
     Indication: FIBROSIS
  3. COPEGUS [Concomitant]
     Indication: HEPATITIS C
     Route: 048
     Dates: start: 201401
  4. COPEGUS [Concomitant]
     Indication: FIBROSIS

REACTIONS (1)
  - Epistaxis [Not Recovered/Not Resolved]
